FAERS Safety Report 17453246 (Version 1)
Quarter: 2020Q1

REPORT INFORMATION
  Report Type: Spontaneous
  Country: US (occurrence: US)
  Receive Date: 20200224
  Receipt Date: 20200224
  Transmission Date: 20200409
  Serious: No
  Sender: FDA-Public Use
  Company Number: US-PERRIGO-19US003078

PATIENT
  Sex: Male
  Weight: 111.57 kg

DRUGS (4)
  1. OCTREOTIDE                         /00821002/ [Concomitant]
     Active Substance: OCTREOTIDE ACETATE
     Indication: PANCREATIC NEUROENDOCRINE TUMOUR
     Dosage: UNK (INJECTION)
     Route: 065
     Dates: start: 2018
  2. SUTENT [Concomitant]
     Active Substance: SUNITINIB MALATE
     Indication: PANCREATIC NEUROENDOCRINE TUMOUR
     Dosage: UNK
     Dates: start: 201805, end: 20181213
  3. LOPERAMIDE HYDROCHLORIDE. [Suspect]
     Active Substance: LOPERAMIDE HYDROCHLORIDE
     Indication: DIARRHOEA
     Dosage: TOTAL OF 4 MG, QD
     Route: 048
     Dates: start: 2018, end: 2018
  4. LOPERAMIDE HYDROCHLORIDE. [Suspect]
     Active Substance: LOPERAMIDE HYDROCHLORIDE
     Dosage: TOTAL OF 16 MG, QD
     Route: 048
     Dates: start: 2018

REACTIONS (2)
  - Intentional product use issue [Unknown]
  - Incorrect product administration duration [Unknown]

NARRATIVE: CASE EVENT DATE: 2018
